FAERS Safety Report 5841067-3 (Version None)
Quarter: 2008Q3

REPORT INFORMATION
  Report Type: 
  Country: None (occurrence: None)
  Receive Date: 20080811
  Receipt Date: 20080804
  Transmission Date: 20090109
  Serious: Yes (Hospitalization)
  Sender: FDA-Public Use
  Company Number: US-ELI_LILLY_AND_COMPANY-US200806005418

PATIENT
  Sex: Female
  Weight: 85.261 kg

DRUGS (15)
  1. BYETTA [Suspect]
     Indication: TYPE 2 DIABETES MELLITUS
     Dosage: 5 UG, 2/D
     Route: 058
     Dates: start: 20060728, end: 20061002
  2. BYETTA [Suspect]
     Dosage: 10 UG, 2/D
     Route: 058
     Dates: start: 20061002, end: 20080611
  3. GLYNASE [Concomitant]
  4. NEXIUM [Concomitant]
     Dosage: 40 MG, DAILY (1/D)
  5. SYNTHROID [Concomitant]
     Dosage: 150 MG, DAILY (1/D)
  6. LISINOPRIL [Concomitant]
     Dosage: 10 MG, DAILY (1/D)
  7. ALLEGRA [Concomitant]
     Dosage: 180 MG, DAILY (1/D)
  8. ASPIRIN [Concomitant]
     Dosage: 81 MG, DAILY (1/D)
  9. VITAMINS NOS [Concomitant]
     Dosage: UNK, DAILY (1/D)
  10. LASIX [Concomitant]
     Dosage: 20 MG, DAILY (1/D)
  11. CELEBREX [Concomitant]
  12. NASACORT [Concomitant]
  13. TRICOR [Concomitant]
  14. FORTICOL [Concomitant]
  15. CALCIUM D [Concomitant]

REACTIONS (2)
  - PANCREATITIS [None]
  - WEIGHT DECREASED [None]
